FAERS Safety Report 12967776 (Version 2)
Quarter: 2016Q4

REPORT INFORMATION
  Report Type: Spontaneous
  Country: US (occurrence: US)
  Receive Date: 20161123
  Receipt Date: 20161206
  Transmission Date: 20170207
  Serious: No
  Sender: FDA-Public Use
  Company Number: US-PFIZER INC-2016538774

PATIENT
  Sex: Female

DRUGS (2)
  1. EFFEXOR [Suspect]
     Active Substance: VENLAFAXINE HYDROCHLORIDE
     Dosage: UNK
     Dates: end: 201611
  2. LYRICA [Concomitant]
     Active Substance: PREGABALIN

REACTIONS (4)
  - Apathy [Unknown]
  - Fatigue [Unknown]
  - Mood altered [Unknown]
  - Irritability [Unknown]

NARRATIVE: CASE EVENT DATE: 201611
